FAERS Safety Report 9166531 (Version 2)
Quarter: 2013Q2

REPORT INFORMATION
  Report Type: Spontaneous
  Country: CA (occurrence: CA)
  Receive Date: 20130315
  Receipt Date: 20130422
  Transmission Date: 20140414
  Serious: Yes (Other)
  Sender: FDA-Public Use
  Company Number: CA-AMGEN-CANSP2013015637

PATIENT
  Age: 70 Year
  Sex: Female
  Weight: 44.55 kg

DRUGS (1)
  1. PROLIA [Suspect]
     Indication: OSTEOPOROSIS POSTMENOPAUSAL
     Dosage: UNK
     Dates: start: 20110816

REACTIONS (4)
  - Mobility decreased [Unknown]
  - Myalgia [Unknown]
  - Bone pain [Unknown]
  - Fear [Unknown]
